FAERS Safety Report 22115619 (Version 1)
Quarter: 2023Q1

REPORT INFORMATION
  Report Type: Spontaneous
  Country: US (occurrence: None)
  Receive Date: 20230320
  Receipt Date: 20230320
  Transmission Date: 20230418
  Serious: No
  Sender: FDA-Public Use
  Company Number: None

PATIENT
  Age: 67 Year
  Sex: Male
  Weight: 82.6 kg

DRUGS (15)
  1. CAPECITABINE [Suspect]
     Active Substance: CAPECITABINE
     Indication: Colon cancer
     Dosage: 1500MG  2W, 1W OFF ORAL?
     Route: 048
  2. B COMPLEX VITAMINS [Concomitant]
  3. BENICAR [Concomitant]
  4. ELIQUIS [Concomitant]
  5. FOLIC ACID [Concomitant]
  6. IRON [Concomitant]
  7. LIPITOR [Concomitant]
  8. LYRICA [Concomitant]
  9. MAGNESIUM [Concomitant]
  10. METFORMIN [Concomitant]
  11. METOPROLOL [Concomitant]
  12. ONDANSETRON [Concomitant]
  13. PERCOCET [Concomitant]
  14. PROCHLORPERAZINE [Concomitant]
  15. THIAMINE HCI [Concomitant]

REACTIONS (3)
  - Atrial fibrillation [None]
  - Rash [None]
  - Therapy interrupted [None]
